FAERS Safety Report 15239887 (Version 2)
Quarter: 2019Q2

REPORT INFORMATION
  Report Type: Spontaneous
  Country: US (occurrence: US)
  Receive Date: 20180803
  Receipt Date: 20190430
  Transmission Date: 20190711
  Serious: Yes (Other)
  Sender: FDA-Public Use
  Company Number: US-BAUSCH-BL-2018-020713

PATIENT
  Sex: Male

DRUGS (5)
  1. CISAPRIDE [Concomitant]
     Active Substance: CISAPRIDE
     Indication: PRODUCT USED FOR UNKNOWN INDICATION
     Route: 048
  2. MESTINON [Suspect]
     Active Substance: PYRIDOSTIGMINE BROMIDE
     Dosage: ON 31/JUL/2018, ONLY TOOK 1 DOSE OF HIS MESTINON SYRUP (EXACT DOSE: UNSPECIFIED)
     Route: 048
     Dates: start: 201807
  3. MESTINON [Suspect]
     Active Substance: PYRIDOSTIGMINE BROMIDE
     Indication: IMPAIRED GASTRIC EMPTYING
     Dosage: FOR YEARS
     Route: 048
  4. MESTINON [Suspect]
     Active Substance: PYRIDOSTIGMINE BROMIDE
     Indication: CHOLINERGIC SYNDROME
     Dosage: AT A DECREASED HIS DAILY DOSE (DID NOT CLEAR CHANGE IN DOSE)
     Route: 048
  5. MESTINON [Suspect]
     Active Substance: PYRIDOSTIGMINE BROMIDE
     Dosage: THE PHYSICIAN WEANED HIM FROM 30MG TO 15MG TO 10MG
     Route: 048
     Dates: start: 2019, end: 2019

REACTIONS (13)
  - Muscle twitching [Recovering/Resolving]
  - Ocular discomfort [Recovering/Resolving]
  - Hyperhidrosis [Recovering/Resolving]
  - Pain [Not Recovered/Not Resolved]
  - Product dose omission [Unknown]
  - Product taste abnormal [Unknown]
  - Muscular weakness [Not Recovered/Not Resolved]
  - Paralysis [Recovering/Resolving]
  - Vision blurred [Not Recovered/Not Resolved]
  - Visual impairment [Recovering/Resolving]
  - Sinusitis [Recovered/Resolved]
  - Miosis [Recovering/Resolving]
  - Asthenopia [Not Recovered/Not Resolved]

NARRATIVE: CASE EVENT DATE: 201806
